FAERS Safety Report 6520998-5 (Version None)
Quarter: 2009Q4

REPORT INFORMATION
  Report Type: 
  Country: None (occurrence: None)
  Receive Date: 20091229
  Receipt Date: 20091217
  Transmission Date: 20100525
  Serious: Yes (Hospitalization)
  Sender: FDA-Public Use
  Company Number: JP-PFIZER INC-2009308337

PATIENT
  Age: 62 Year
  Sex: Male
  Weight: 49 kg

DRUGS (5)
  1. CELECOX [Suspect]
     Indication: BACK PAIN
     Dosage: 100 MG, 1X/DAY
     Route: 048
     Dates: start: 20091130, end: 20091130
  2. CELECOX [Suspect]
     Indication: ANALGESIC THERAPY
     Dosage: 100 MG, 1X/DAY
     Route: 048
  3. MOHRUS [Suspect]
     Indication: ANALGESIC THERAPY
     Dosage: 2 DF, UID/1X/DAY
     Route: 062
     Dates: start: 20091130, end: 20091130
  4. SERETIDE MITE [Concomitant]
     Indication: ASTHMA
     Dosage: UNK
     Dates: start: 20091130, end: 20091130
  5. THEOPHYLLINE [Concomitant]
     Indication: ASTHMA
     Dosage: UNK
     Dates: start: 19990129

REACTIONS (1)
  - ANALGESIC ASTHMA SYNDROME [None]
